FAERS Safety Report 21239214 (Version 4)
Quarter: 2025Q3

REPORT INFORMATION
  Report Type: Report from Study
  Country: AU (occurrence: AU)
  Receive Date: 20220822
  Receipt Date: 20250818
  Transmission Date: 20251020
  Serious: Yes (Death, Other)
  Sender: ROCHE
  Company Number: AU-ROCHE-3164949

PATIENT
  Age: 78 Year
  Sex: Female

DRUGS (9)
  1. COBIMETINIB [Suspect]
     Active Substance: COBIMETINIB
     Indication: Neoplasm malignant
     Route: 048
  2. VEMURAFENIB [Suspect]
     Active Substance: VEMURAFENIB
     Indication: Neoplasm malignant
     Route: 048
  3. VEMURAFENIB [Suspect]
     Active Substance: VEMURAFENIB
     Route: 048
  4. PEMBROLIZUMAB [Suspect]
     Active Substance: PEMBROLIZUMAB
     Indication: Neoplasm malignant
     Route: 065
  5. APIXABAN [Concomitant]
     Active Substance: APIXABAN
  6. MAXIDEX [Concomitant]
     Active Substance: DEXAMETHASONE
  7. MICARDIS [Concomitant]
     Active Substance: TELMISARTAN
  8. LIPITOR [Concomitant]
     Active Substance: ATORVASTATIN CALCIUM
  9. THYROXINE [Concomitant]
     Active Substance: LEVOTHYROXINE

REACTIONS (4)
  - Pleural effusion [Not Recovered/Not Resolved]
  - Retinopathy [Not Recovered/Not Resolved]
  - General physical health deterioration [Unknown]
  - Death [Fatal]
